FAERS Safety Report 5954673-2 (Version None)
Quarter: 2008Q4

REPORT INFORMATION
  Report Type: 
  Country: None (occurrence: None)
  Receive Date: 20081117
  Receipt Date: 20081105
  Transmission Date: 20090506
  Serious: Yes (Death)
  Sender: FDA-Public Use
  Company Number: PHHY2008MX27148

PATIENT
  Age: 78 Year
  Sex: Female

DRUGS (1)
  1. STALEVO 100 [Suspect]
     Indication: PARKINSON'S DISEASE
     Dosage: 1.5 TABLETS (150 L/37.5 C/200 E MG) PER DAY
     Route: 048
     Dates: start: 20071001

REACTIONS (1)
  - RESPIRATORY FAILURE [None]
